FAERS Safety Report 21627867 (Version 1)
Quarter: 2022Q4

REPORT INFORMATION
  Report Type: Spontaneous
  Country: US (occurrence: None)
  Receive Date: 20221121
  Receipt Date: 20221121
  Transmission Date: 20230112
  Serious: Yes (Other)
  Sender: FDA-Public Use
  Company Number: None

PATIENT
  Age: 77 Year
  Sex: Female
  Weight: 83.91 kg

DRUGS (16)
  1. PREDNISONE [Suspect]
     Active Substance: PREDNISONE
     Indication: Arthralgia
     Dosage: PREDINSONE FIRST DAY TE GRADUALLY FEWER PER DAT TO EMC
     Route: 048
     Dates: start: 20220916, end: 20220921
  2. TIZANIDINE HYDROCHLORIDE [Suspect]
     Active Substance: TIZANIDINE HYDROCHLORIDE
     Route: 048
  3. DILTIAZEM [Concomitant]
     Active Substance: DILTIAZEM
  4. PRAVASTATIN [Concomitant]
     Active Substance: PRAVASTATIN
  5. LATANOPROST [Concomitant]
     Active Substance: LATANOPROST
  6. LATANAPROST OP SOL [Concomitant]
  7. BRIMONIDINE [Concomitant]
     Active Substance: BRIMONIDINE TARTRATE
  8. PACEMAKER IMPLANT [Concomitant]
  9. ASPIRIN [Concomitant]
     Active Substance: ASPIRIN
  10. TYLENOL [Concomitant]
     Active Substance: ACETAMINOPHEN
  11. ALEVE [Concomitant]
     Active Substance: NAPROXEN SODIUM
  12. ROLAIDS [Concomitant]
     Active Substance: CALCIUM CARBONATE\MAGNESIUM HYDROXIDE
  13. MULTIVITAMINS FOR WOMEN [Concomitant]
  14. CALCIUM [Concomitant]
     Active Substance: CALCIUM
  15. MAGNESIUM [Concomitant]
     Active Substance: MAGNESIUM
  16. FISH OIL [Concomitant]
     Active Substance: FISH OIL

REACTIONS (2)
  - Atrial fibrillation [None]
  - Joint dislocation [None]

NARRATIVE: CASE EVENT DATE: 20220920
